FAERS Safety Report 12570334 (Version 1)
Quarter: 2016Q3

REPORT INFORMATION
  Report Type: Spontaneous
  Country: US (occurrence: None)
  Receive Date: 20160718
  Receipt Date: 20160718
  Transmission Date: 20161109
  Serious: No
  Sender: FDA-Public Use
  Company Number: None

PATIENT
  Age: 44 Year
  Sex: Female
  Weight: 77.11 kg

DRUGS (2)
  1. VELTIN [Suspect]
     Active Substance: CLINDAMYCIN PHOSPHATE\TRETINOIN
     Indication: SKIN DISORDER
     Dosage: 1 TUBE  APPLIED TO A SURFACE, UUSUALLY THE SKIN
     Dates: start: 20160712, end: 20160713
  2. VITAMIN PACK FOR WOMEN [Concomitant]

REACTIONS (4)
  - Swelling face [None]
  - Skin irritation [None]
  - Blister [None]
  - Erythema [None]

NARRATIVE: CASE EVENT DATE: 20160713
